FAERS Safety Report 8349768-2 (Version None)
Quarter: 2012Q2

REPORT INFORMATION
  Report Type: 
  Country: None (occurrence: None)
  Receive Date: 20120510
  Receipt Date: 20120503
  Transmission Date: 20120825
  Serious: Yes (Hospitalization, Other)
  Sender: FDA-Public Use
  Company Number: US-BAYER-2011-122312

PATIENT
  Age: 22 Year
  Sex: Female
  Weight: 93 kg

DRUGS (17)
  1. ZOSYN [Concomitant]
  2. TRAMADOL HYDROCHLORIDE [Concomitant]
     Indication: PAIN
     Dosage: 50 MG
  3. AMOXICILLIN [Concomitant]
     Dosage: 500 MG, BID
     Route: 048
  4. ATIVAN [Concomitant]
     Dosage: 0.5 MG, BID
     Route: 048
  5. VANCOMYCIN [Concomitant]
  6. AUGMENTIN [Concomitant]
  7. GUAIFENESIN/CODEINE [Concomitant]
     Dosage: 100-10 MG/5 ML
  8. AZITHROMYCIN [Concomitant]
  9. LEVAQUIN [Concomitant]
  10. FEXOFENADINE [Concomitant]
     Route: 048
  11. TRAMADOL HYDROCHLORIDE [Concomitant]
     Dosage: 50 MG, Q4HR
  12. ADDERALL 5 [Concomitant]
     Indication: ATTENTION DEFICIT/HYPERACTIVITY DISORDER
     Dosage: 30 MG
     Dates: start: 20090501, end: 20110201
  13. NASACORT [Concomitant]
     Route: 045
  14. YAZ [Suspect]
     Indication: CONTRACEPTION
     Dosage: UNK
     Dates: start: 20070101, end: 20070301
  15. YAZ [Suspect]
     Indication: OVARIAN CYST
     Dosage: UNK
     Dates: start: 20090831, end: 20091203
  16. NAPROXEN (ALEVE) [Concomitant]
     Dosage: UNK UNK, PRN
     Route: 048
  17. OMNICEF [Concomitant]
     Dosage: 300 MG, BID
     Route: 048

REACTIONS (3)
  - INJURY [None]
  - PULMONARY EMBOLISM [None]
  - LUNG CONSOLIDATION [None]
